FAERS Safety Report 11166774 (Version 1)
Quarter: 2015Q2

REPORT INFORMATION
  Report Type: Spontaneous
  Country: US (occurrence: US)
  Receive Date: 20150605
  Receipt Date: 20150605
  Transmission Date: 20150821
  Serious: No
  Sender: FDA-Public Use
  Company Number: US-JNJFOC-20150418728

PATIENT
  Sex: Male

DRUGS (1)
  1. RISPERDAL [Suspect]
     Active Substance: RISPERIDONE
     Indication: HALLUCINATION, AUDITORY
     Route: 048
     Dates: start: 1996, end: 2015

REACTIONS (5)
  - Drug withdrawal syndrome [Unknown]
  - Somnolence [Unknown]
  - Dizziness [Unknown]
  - Gynaecomastia [Not Recovered/Not Resolved]
  - Tremor [Not Recovered/Not Resolved]
